FAERS Safety Report 8435460-2 (Version None)
Quarter: 2012Q2

REPORT INFORMATION
  Report Type: 
  Country: None (occurrence: None)
  Receive Date: 20120614
  Receipt Date: 20120608
  Transmission Date: 20120825
  Serious: Yes (Other)
  Sender: FDA-Public Use
  Company Number: US-PFIZER INC-2012139951

PATIENT

DRUGS (1)
  1. ZOLOFT [Suspect]
     Dosage: UNK
     Route: 064
     Dates: start: 20060101

REACTIONS (5)
  - MATERNAL EXPOSURE DURING PREGNANCY [None]
  - BRONCHIAL HYPERREACTIVITY [None]
  - GASTROOESOPHAGEAL REFLUX DISEASE [None]
  - OTITIS MEDIA [None]
  - DEVELOPMENTAL DELAY [None]
